FAERS Safety Report 7939358-5 (Version None)
Quarter: 2011Q4

REPORT INFORMATION
  Report Type: 
  Country: None (occurrence: None)
  Receive Date: 20111125
  Receipt Date: 20111115
  Transmission Date: 20120403
  Serious: Yes (Other)
  Sender: FDA-Public Use
  Company Number: FR-BAYER-2011-050036

PATIENT
  Age: 23 Year
  Sex: Female
  Weight: 58 kg

DRUGS (2)
  1. ESTRADIOL VALERATE/DIENOGEST [Suspect]
     Indication: CONTRACEPTION
     Dosage: 1 DF, QD
     Route: 048
     Dates: start: 20100101, end: 20110101
  2. LEVOTHYROXINE SODIUM [Concomitant]
     Indication: THYROIDECTOMY
     Dosage: 150 ?G, QD
     Route: 048
     Dates: start: 20090101

REACTIONS (6)
  - PAIN [None]
  - HAEMORRHAGIC CYST [None]
  - FUNGAL INFECTION [None]
  - THROMBOSIS [None]
  - DYSPAREUNIA [None]
  - HAEMORRHAGE [None]
